FAERS Safety Report 23492303 (Version 2)
Quarter: 2024Q2

REPORT INFORMATION
  Report Type: Spontaneous
  Country: US (occurrence: US)
  Receive Date: 20240207
  Receipt Date: 20240412
  Transmission Date: 20240716
  Serious: No
  Sender: FDA-Public Use
  Company Number: US-ARBOR PHARMACEUTICALS, LLC-US-2024AZR000108

PATIENT
  Sex: Male

DRUGS (2)
  1. ZENZEDI [Suspect]
     Active Substance: DEXTROAMPHETAMINE SULFATE
     Indication: Narcolepsy
     Dosage: 15 MG, SIX TIMES DAILY
     Route: 065
  2. ZENZEDI [Suspect]
     Active Substance: DEXTROAMPHETAMINE SULFATE
     Dosage: 30 MG, TID
     Route: 065
     Dates: start: 202401

REACTIONS (5)
  - Hypersomnia [Not Recovered/Not Resolved]
  - Weight increased [Unknown]
  - Impaired work ability [Unknown]
  - Product dispensing error [Unknown]
  - Recalled product administered [Unknown]

NARRATIVE: CASE EVENT DATE: 20240101
